FAERS Safety Report 5160084-2 (Version None)
Quarter: 2006Q4

REPORT INFORMATION
  Report Type: 
  Country: None (occurrence: None)
  Receive Date: 20061129
  Receipt Date: 20060919
  Transmission Date: 20070319
  Serious: No
  Sender: FDA-Public Use
  Company Number: US-GLAXOSMITHKLINE-A0620689A

PATIENT
  Age: 59 Year
  Sex: Female

DRUGS (6)
  1. WELLBUTRIN SR [Suspect]
     Indication: DEPRESSION
     Dosage: 150MG THREE TIMES PER DAY
     Route: 048
  2. PROZAC [Concomitant]
  3. GLUCOVANCE [Concomitant]
  4. PREVACID [Concomitant]
  5. ALTACE [Concomitant]
  6. LIPITOR [Concomitant]

REACTIONS (4)
  - CRYING [None]
  - DEPRESSION [None]
  - EMOTIONAL DISORDER [None]
  - PHARMACEUTICAL PRODUCT COMPLAINT [None]
